FAERS Safety Report 20771670 (Version 1)
Quarter: 2022Q2

REPORT INFORMATION
  Report Type: Other
  Country: US (occurrence: None)
  Receive Date: 20220430
  Receipt Date: 20220430
  Transmission Date: 20220721
  Serious: Yes (Other)
  Sender: FDA-Public Use
  Company Number: US-ROCHE-3086673

PATIENT
  Sex: Female

DRUGS (2)
  1. XELODA [Suspect]
     Active Substance: CAPECITABINE
     Indication: Rectosigmoid cancer
     Dosage: TAKE 4 TABLETS (2000MG) BY MOUTH IN THE MORNING AND 3 TABLETS (1500MG) BY MOUTH IN THE EVENING
     Route: 048
  2. XELODA [Suspect]
     Active Substance: CAPECITABINE
     Indication: Gastric cancer

REACTIONS (1)
  - Blindness [Unknown]
